FAERS Safety Report 22762415 (Version 4)
Quarter: 2023Q4

REPORT INFORMATION
  Report Type: Spontaneous
  Country: US (occurrence: US)
  Receive Date: 20230728
  Receipt Date: 20231226
  Transmission Date: 20240109
  Serious: Yes (Hospitalization)
  Sender: FDA-Public Use
  Company Number: US-ELI_LILLY_AND_COMPANY-US202307014570

PATIENT
  Sex: Female

DRUGS (3)
  1. ADCIRCA [Suspect]
     Active Substance: TADALAFIL
     Indication: Pulmonary arterial hypertension
     Dosage: 40 MG, DAILY
     Route: 048
     Dates: start: 202205
  2. REMODULIN [Suspect]
     Active Substance: TREPROSTINIL
     Indication: Pulmonary arterial hypertension
     Dosage: 48 NG/KG/MIN, DAILY
     Route: 042
     Dates: start: 202204
  3. REMODULIN [Suspect]
     Active Substance: TREPROSTINIL
     Dosage: 51 NG/KG/MIN, DAILY
     Route: 058

REACTIONS (6)
  - Dermatitis [Unknown]
  - Catheter site pruritus [Not Recovered/Not Resolved]
  - Catheter site irritation [Not Recovered/Not Resolved]
  - Infusion site erythema [Not Recovered/Not Resolved]
  - Infusion site discomfort [Unknown]
  - Infusion site pain [Unknown]
